FAERS Safety Report 12596077 (Version 1)
Quarter: 2016Q3

REPORT INFORMATION
  Report Type: Report from Study
  Country: US (occurrence: US)
  Receive Date: 20160726
  Receipt Date: 20160726
  Transmission Date: 20161109
  Serious: Yes (Other)
  Sender: FDA-Public Use
  Company Number: US-AMGEN-USASL2016023359

PATIENT
  Age: 58 Year
  Sex: Male

DRUGS (1)
  1. KYPROLIS [Suspect]
     Active Substance: CARFILZOMIB
     Indication: PLASMA CELL MYELOMA
     Dosage: UNK UNK, 2 TIMES/WK
     Route: 065
     Dates: start: 201601

REACTIONS (10)
  - Polydipsia [Unknown]
  - Asthenia [Not Recovered/Not Resolved]
  - Mental disorder [Unknown]
  - Bedridden [Unknown]
  - Bone pain [Unknown]
  - Fatigue [Unknown]
  - Unevaluable event [Unknown]
  - Memory impairment [Not Recovered/Not Resolved]
  - Back pain [Unknown]
  - Metastases to kidney [Unknown]

NARRATIVE: CASE EVENT DATE: 2016
